FAERS Safety Report 6463654-4 (Version None)
Quarter: 2009Q4

REPORT INFORMATION
  Report Type: 
  Country: None (occurrence: None)
  Receive Date: 20091123
  Receipt Date: 20091111
  Transmission Date: 20100525
  Serious: Yes (Hospitalization)
  Sender: FDA-Public Use
  Company Number: 220042J09GBR

PATIENT
  Age: 16 Year
  Sex: Male

DRUGS (1)
  1. SAIZEN [Suspect]
     Dosage: 2 MG
     Dates: start: 20091005

REACTIONS (4)
  - BACK PAIN [None]
  - CHEST PAIN [None]
  - CONDITION AGGRAVATED [None]
  - HEADACHE [None]
